FAERS Safety Report 21102717 (Version 1)
Quarter: 2022Q3

REPORT INFORMATION
  Report Type: Spontaneous
  Country: US (occurrence: US)
  Receive Date: 20220720
  Receipt Date: 20220720
  Transmission Date: 20221027
  Serious: Yes (Hospitalization)
  Sender: FDA-Public Use
  Company Number: US-JNJFOC-20220728390

PATIENT
  Age: 72 Year
  Sex: Male
  Weight: 96.2 kg

DRUGS (3)
  1. XARELTO [Suspect]
     Active Substance: RIVAROXABAN
     Indication: Cerebrovascular accident prophylaxis
     Route: 048
     Dates: start: 2019, end: 20220306
  2. XARELTO [Suspect]
     Active Substance: RIVAROXABAN
     Indication: Atrial fibrillation
     Route: 048
     Dates: start: 20220310, end: 20220311
  3. ASPIRIN [Suspect]
     Active Substance: ASPIRIN
     Indication: Prophylaxis
     Route: 065
     Dates: start: 1989, end: 20220215

REACTIONS (3)
  - Post procedural haemorrhage [Recovered/Resolved]
  - Large intestinal polypectomy [Unknown]
  - Off label use [Unknown]

NARRATIVE: CASE EVENT DATE: 20190101
